FAERS Safety Report 18015284 (Version 1)
Quarter: 2020Q3

REPORT INFORMATION
  Report Type: Spontaneous
  Country: US (occurrence: US)
  Receive Date: 20200713
  Receipt Date: 20200713
  Transmission Date: 20201103
  Serious: No
  Sender: FDA-Public Use
  Company Number: US-FOUNDATIONCONSUMERHC-2020-US-009930

PATIENT
  Age: 44 Year
  Sex: Female
  Weight: 53.52 kg

DRUGS (2)
  1. PLAN B ONE?STEP [Suspect]
     Active Substance: LEVONORGESTREL
     Indication: POST COITAL CONTRACEPTION
     Dosage: 1.5MG X 1 DOSE
     Route: 048
     Dates: start: 20200421, end: 20200421
  2. VITAMINS [Concomitant]
     Active Substance: VITAMINS

REACTIONS (5)
  - Breast tenderness [Recovered/Resolved]
  - Vaginal discharge [Not Recovered/Not Resolved]
  - Vaginal haemorrhage [Recovered/Resolved]
  - Abdominal distension [Recovered/Resolved]
  - Feeling abnormal [Not Recovered/Not Resolved]

NARRATIVE: CASE EVENT DATE: 20200428
